FAERS Safety Report 8879538 (Version 1)
Quarter: 2012Q4

REPORT INFORMATION
  Report Type: 
  Country: KW (occurrence: KW)
  Receive Date: 20121101
  Receipt Date: 20121101
  Transmission Date: 20130627
  Serious: Yes (Death, Hospitalization)
  Sender: FDA-Public Use
  Company Number: KW-MPIJNJ-2012-07344

PATIENT

DRUGS (3)
  1. VELCADE [Suspect]
     Indication: MULTIPLE MYELOMA
     Dosage: 2.6 mg, UNK
     Route: 042
     Dates: start: 20120423, end: 20120618
  2. ZOMETA [Concomitant]
  3. CALCIUM [Concomitant]

REACTIONS (1)
  - Atrial fibrillation [Fatal]
